FAERS Safety Report 5480952-1 (Version None)
Quarter: 2007Q4

REPORT INFORMATION
  Report Type: 
  Country: None (occurrence: None)
  Receive Date: 20071004
  Receipt Date: 20070918
  Transmission Date: 20080405
  Serious: No
  Sender: FDA-Public Use
  Company Number: A-CH2007-17335

PATIENT
  Age: 71 Year
  Sex: Male
  Weight: 82 kg

DRUGS (11)
  1. TRACLEER [Suspect]
     Indication: PULMONARY HYPERTENSION
     Dosage: 62.5 MG, BID, ORAL; 125 MG, BID, ORAL
     Route: 048
     Dates: start: 20070719, end: 20070903
  2. TRACLEER [Suspect]
     Indication: PULMONARY HYPERTENSION
     Dosage: 62.5 MG, BID, ORAL; 125 MG, BID, ORAL
     Route: 048
     Dates: start: 20070904
  3. PROVAS (VALSARTAN) [Concomitant]
  4. METOPROLOL SUCCINATE [Concomitant]
  5. CLOPIDOGREL BISULFATE [Concomitant]
  6. AZATHIOPRINE [Concomitant]
  7. DECORTIN (PREDNISONE) [Concomitant]
  8. PROSPAN (HEDERA HELIX) [Concomitant]
  9. ISUHUMAN COMB (INSULIN HUMAN, INSULIN HUMAN INJECTION, ISOPHANE) [Concomitant]
  10. TORASEM (TORASEMIDE) [Concomitant]
  11. ACETYLCYSTEINE [Concomitant]

REACTIONS (10)
  - COUGH [None]
  - DYSPNOEA [None]
  - DYSPNOEA EXERTIONAL [None]
  - FLUID RETENTION [None]
  - HEADACHE [None]
  - HYPERSENSITIVITY [None]
  - JOINT SWELLING [None]
  - NAUSEA [None]
  - OEDEMA MUCOSAL [None]
  - STOMACH DISCOMFORT [None]
